FAERS Safety Report 8814840 (Version 1)
Quarter: 2012Q4

REPORT INFORMATION
  Report Type: 
  Country: US (occurrence: US)
  Receive Date: 20120928
  Receipt Date: 20120928
  Transmission Date: 20130627
  Serious: Yes (Other)
  Sender: FDA-Public Use
  Company Number: US-JNJFOC-20120806018

PATIENT
  Age: 80 Year
  Sex: Male

DRUGS (12)
  1. NEUTROGENA T/GEL THERAPEUTIC [Suspect]
     Indication: ACTINIC KERATOSIS
     Dosage: 1/2 tablespoon every other day
     Route: 061
  2. NEUTROGENA T/GEL THERAPEUTIC [Suspect]
     Indication: ACTINIC KERATOSIS
     Dosage: nickle size amount
     Route: 061
     Dates: end: 20120809
  3. METOPROLOL [Concomitant]
     Indication: HYPERTENSION
     Route: 065
  4. LISINOPRIL [Concomitant]
     Indication: HYPERTENSION
     Route: 065
  5. OMEPRAZOLE [Concomitant]
     Indication: GASTROOESOPHAGEAL REFLUX DISEASE
     Route: 065
  6. LIPITOR [Concomitant]
     Indication: BLOOD CHOLESTEROL INCREASED
     Route: 065
  7. ALLOPURINOL [Concomitant]
     Indication: GOUT
     Route: 065
  8. PLAVIX [Concomitant]
     Indication: ARTERIOSCLEROSIS
     Route: 065
  9. ASPIRIN [Concomitant]
     Indication: CARDIAC DISORDER
     Route: 065
  10. CENTRUM MULTIVITAMINS [Concomitant]
     Indication: ROUTINE HEALTH MAINTENANCE
     Route: 065
  11. VITAMINS (NOS) [Concomitant]
     Indication: ROUTINE HEALTH MAINTENANCE
     Route: 065
  12. CHEMO MEDICATION [Concomitant]
     Indication: BLADDER CANCER
     Route: 065

REACTIONS (2)
  - Dermatitis [Recovering/Resolving]
  - Off label use [Unknown]
